FAERS Safety Report 7620522-X (Version None)
Quarter: 2011Q3

REPORT INFORMATION
  Report Type: 
  Country: None (occurrence: None)
  Receive Date: 20110719
  Receipt Date: 20110705
  Transmission Date: 20111222
  Serious: Yes (Hospitalization)
  Sender: FDA-Public Use
  Company Number: US-SANOFI-AVENTIS-2011SA044471

PATIENT
  Age: 80 Year
  Sex: Male
  Weight: 100 kg

DRUGS (7)
  1. DRONEDARONE HCL [Suspect]
     Indication: ATRIAL FIBRILLATION
     Route: 048
     Dates: start: 20100811, end: 20101108
  2. METOPROLOL TARTRATE [Concomitant]
     Route: 065
  3. ALDACTONE [Concomitant]
     Route: 065
  4. VERAPAMIL [Concomitant]
     Route: 065
     Dates: start: 20100909
  5. WARFARIN SODIUM [Concomitant]
     Route: 065
  6. ROSUVASTATIN [Concomitant]
     Route: 065
  7. ASPIRIN [Concomitant]
     Route: 065

REACTIONS (1)
  - CARDIAC FAILURE [None]
